FAERS Safety Report 6242688-9 (Version None)
Quarter: 2009Q2

REPORT INFORMATION
  Report Type: 
  Country: None (occurrence: None)
  Receive Date: 20090624
  Receipt Date: 20090612
  Transmission Date: 20091009
  Serious: Yes (Hospitalization, Other)
  Sender: FDA-Public Use
  Company Number: DE-ROCHE-638279

PATIENT
  Sex: Male
  Weight: 72 kg

DRUGS (1)
  1. CAPECITABINE [Suspect]
     Route: 048
     Dates: start: 20090116, end: 20090312

REACTIONS (11)
  - ANAEMIA OF MALIGNANT DISEASE [None]
  - BENIGN PROSTATIC HYPERPLASIA [None]
  - COAGULOPATHY [None]
  - DIARRHOEA [None]
  - FALL [None]
  - HEAD INJURY [None]
  - HYPERTENSION [None]
  - HYPOKALAEMIA [None]
  - LIVER DISORDER [None]
  - THROMBOCYTOPENIA [None]
  - URINARY TRACT INFECTION [None]
